FAERS Safety Report 5022798-4 (Version None)
Quarter: 2006Q2

REPORT INFORMATION
  Report Type: 
  Country: None (occurrence: None)
  Receive Date: 20060426
  Receipt Date: 20060316
  Transmission Date: 20061013
  Serious: Yes (Other)
  Sender: FDA-Public Use
  Company Number: 2005159013

PATIENT
  Sex: Female

DRUGS (2)
  1. LYRICA [Suspect]
     Indication: DYSARTHRIA
     Dosage: 300 MG (100 MG, 3 IN 1 D), ORAL
     Route: 048
  2. LYRICA [Suspect]
     Indication: INTENTION TREMOR
     Dosage: 300 MG (100 MG, 3 IN 1 D), ORAL
     Route: 048

REACTIONS (4)
  - MUSCLE SPASMS [None]
  - MUSCLE TWITCHING [None]
  - PARALYSIS [None]
  - SPEECH DISORDER [None]
